FAERS Safety Report 7452424-6 (Version None)
Quarter: 2011Q2

REPORT INFORMATION
  Report Type: 
  Country: None (occurrence: None)
  Receive Date: 20110502
  Receipt Date: 20100921
  Transmission Date: 20111010
  Serious: No
  Sender: FDA-Public Use
  Company Number: US-ASTRAZENECA-2010SE44702

PATIENT
  Age: 58 Year
  Sex: Male
  Weight: 97.5 kg

DRUGS (6)
  1. PRILOSEC [Suspect]
     Route: 048
  2. SYNTHROID [Concomitant]
  3. ZANTAC [Concomitant]
  4. BENTYL [Concomitant]
  5. TAGAMET [Concomitant]
  6. NEXIUM [Suspect]
     Indication: HYPERCHLORHYDRIA
     Route: 048

REACTIONS (4)
  - VOMITING [None]
  - NEPHROLITHIASIS [None]
  - DRUG DOSE OMISSION [None]
  - DRUG INEFFECTIVE [None]
